FAERS Safety Report 8128537-2 (Version None)
Quarter: 2012Q1

REPORT INFORMATION
  Report Type: 
  Country: None (occurrence: None)
  Receive Date: 20120210
  Receipt Date: 20111202
  Transmission Date: 20120608
  Serious: No
  Sender: FDA-Public Use
  Company Number: US-BRISTOL-MYERS SQUIBB COMPANY-16267882

PATIENT
  Age: 55 Year
  Sex: Female

DRUGS (2)
  1. ORENCIA [Suspect]
     Dosage: NO OF INJ:2 LAST INJ:24NOV2011;125MG PREFILLED SYRINGE
     Route: 058
  2. METHOTREXATE [Suspect]

REACTIONS (1)
  - HERPES ZOSTER [None]
